FAERS Safety Report 23783074 (Version 1)
Quarter: 2024Q2

REPORT INFORMATION
  Report Type: Spontaneous
  Country: DE (occurrence: DE)
  Receive Date: 20240425
  Receipt Date: 20240425
  Transmission Date: 20240715
  Serious: Yes (Death, Other)
  Sender: FDA-Public Use
  Company Number: DE-AMGEN-DEUSP2024080131

PATIENT

DRUGS (1)
  1. ADALIMUMAB [Suspect]
     Active Substance: ADALIMUMAB\ISOPROPYL ALCOHOL
     Indication: Rheumatic disorder
     Dosage: UNK
     Route: 065

REACTIONS (10)
  - Death [Fatal]
  - Acute respiratory distress syndrome [Unknown]
  - Myocarditis [Unknown]
  - Cardiac failure [Unknown]
  - Cytokine storm [Unknown]
  - Embolism [Unknown]
  - Arrhythmia [Unknown]
  - Sepsis [Unknown]
  - COVID-19 [Unknown]
  - Infection [Unknown]
